FAERS Safety Report 4861325-9 (Version None)
Quarter: 2005Q4

REPORT INFORMATION
  Report Type: 
  Country: None (occurrence: None)
  Receive Date: 20051128
  Receipt Date: 20050824
  Transmission Date: 20060501
  Serious: No
  Sender: FDA-Public Use
  Company Number: 216392

PATIENT
  Sex: Male
  Weight: 129.3 kg

DRUGS (1)
  1. RAPTIVA [Suspect]
     Indication: PSORIASIS
     Dosage: 1 MG/KG
     Dates: start: 20050101

REACTIONS (1)
  - DRUG INEFFECTIVE [None]
